FAERS Safety Report 9982755 (Version 1)
Quarter: 2014Q1

REPORT INFORMATION
  Report Type: Report from Study
  Country: US (occurrence: US)
  Receive Date: 20140307
  Receipt Date: 20140307
  Transmission Date: 20141002
  Serious: No
  Sender: FDA-Public Use
  Company Number: US-ABBVIE-13P-163-1180899-00

PATIENT
  Age: 65 Year
  Sex: Female

DRUGS (6)
  1. HUMIRA [Suspect]
     Indication: ANKYLOSING SPONDYLITIS
     Dates: start: 20131113
  2. HYDROXYCHLOROQUINE [Concomitant]
     Indication: ANKYLOSING SPONDYLITIS
  3. NAPROXEN [Concomitant]
     Indication: ANKYLOSING SPONDYLITIS
  4. NAPROXEN [Concomitant]
     Indication: PAIN
  5. PROPRANOLOL [Concomitant]
     Indication: MIGRAINE
  6. BABY ASPIRIN [Concomitant]
     Indication: ANTICOAGULANT THERAPY

REACTIONS (3)
  - Joint range of motion decreased [Not Recovered/Not Resolved]
  - Arthralgia [Not Recovered/Not Resolved]
  - Drug ineffective [Not Recovered/Not Resolved]
